FAERS Safety Report 4524067-5 (Version None)
Quarter: 2004Q4

REPORT INFORMATION
  Report Type: 
  Country: None (occurrence: None)
  Receive Date: 20041209
  Receipt Date: 20041126
  Transmission Date: 20050328
  Serious: Yes (Hospitalization)
  Sender: FDA-Public Use
  Company Number: 6011844

PATIENT
  Age: 77 Year
  Sex: Female

DRUGS (5)
  1. LEVOTHYROX 100 (LEVOTHYROXINE SODIUM) [Suspect]
     Indication: DRUG USE FOR UNKNOWN INDICATION
     Dosage: 1 DOSAGE FORMS (1 DOSAGE FORMS, 1 IN 1 D), ORAL; YEARS
     Route: 048
  2. KERLONE [Suspect]
     Indication: ESSENTIAL HYPERTENSION
     Dosage: 20 (20 MG, 1 IN 1 D), ORAL; YEARS
     Route: 048
  3. ALDACTAZINE           (SPIRONOLACTONE, ALTIZIDE) [Suspect]
     Indication: ESSENTIAL HYPERTENSION
     Dosage: 0.5 DOSAGE FORMS (0.5 DOSAGE FORMS, 1 IN 1 D), ORAL
     Route: 048
     Dates: end: 20040804
  4. AERIUS (DESLORATADINE) [Concomitant]
  5. HEXAQUINE (TABLETS) (THIAMINE HYDROCHLORIDE, NIAOULI OIL, QUININE BENZ [Suspect]
     Indication: DRUG USE FOR UNKNOWN INDICATION
     Dosage: 2 DOSAGE FORMS; YEARS
     Dates: end: 20040804

REACTIONS (3)
  - CHOLESTASIS [None]
  - CYTOLYTIC HEPATITIS [None]
  - HEPATITIS A ANTIBODY POSITIVE [None]
